FAERS Safety Report 7495111-0 (Version None)
Quarter: 2011Q2

REPORT INFORMATION
  Report Type: 
  Country: None (occurrence: None)
  Receive Date: 20110520
  Receipt Date: 20110516
  Transmission Date: 20111010
  Serious: Yes (Life-Threatening, Hospitalization)
  Sender: FDA-Public Use
  Company Number: US-US-EMD SERONO, INC.-230567J07USA

PATIENT
  Sex: Male
  Weight: 84 kg

DRUGS (5)
  1. PROVIGIL [Concomitant]
     Route: 065
  2. HYPERTENSION PILL [Concomitant]
     Indication: HYPERTENSION
     Route: 065
  3. CLONAZEPAM [Concomitant]
     Indication: TREMOR
     Route: 065
  4. REBIF [Suspect]
     Indication: MULTIPLE SCLEROSIS
     Route: 058
     Dates: start: 20060602
  5. ATIVAN [Concomitant]
     Indication: INSOMNIA
     Route: 065

REACTIONS (3)
  - PHARYNGEAL DISORDER [None]
  - BRONCHITIS [None]
  - PNEUMONIA ASPIRATION [None]
